FAERS Safety Report 17429796 (Version 4)
Quarter: 2020Q2

REPORT INFORMATION
  Report Type: Spontaneous
  Country: US (occurrence: US)
  Receive Date: 20200218
  Receipt Date: 20200513
  Transmission Date: 20200713
  Serious: Yes (Disabling, Other)
  Sender: FDA-Public Use
  Company Number: US-PFIZER INC-2020064929

PATIENT
  Age: 56 Year
  Sex: Female
  Weight: 58.06 kg

DRUGS (3)
  1. XELJANZ XR [Suspect]
     Active Substance: TOFACITINIB CITRATE
     Dosage: 11 MG, ALTERNATE DAY
  2. XELJANZ XR [Suspect]
     Active Substance: TOFACITINIB CITRATE
     Indication: PSORIATIC ARTHROPATHY
     Dosage: 11 MG, 1X/DAY (FOR FOUR OR FIVE MONTHS)
     Route: 048
     Dates: start: 2019
  3. XELJANZ XR [Suspect]
     Active Substance: TOFACITINIB CITRATE
     Dosage: 11 MG, 1X/DAY
     Route: 048
     Dates: start: 202002

REACTIONS (4)
  - Off label use [Unknown]
  - Arthralgia [Unknown]
  - Drug ineffective [Not Recovered/Not Resolved]
  - Therapeutic response unexpected [Unknown]
